FAERS Safety Report 24572343 (Version 1)
Quarter: 2024Q4

REPORT INFORMATION
  Report Type: Spontaneous
  Country: US (occurrence: None)
  Receive Date: 20241101
  Receipt Date: 20241101
  Transmission Date: 20250115
  Serious: Yes (Hospitalization)
  Sender: Public
  Company Number: None

PATIENT
  Age: 74 Year
  Sex: Male
  Weight: 113 kg

DRUGS (2)
  1. PEMBROLIZUMAB [Suspect]
     Active Substance: PEMBROLIZUMAB
     Indication: Prostate cancer
     Dosage: OTHER FREQUENCY : EVERY21DAYS;?
     Route: 058
     Dates: start: 20231018
  2. OLAPARIB [Suspect]
     Active Substance: OLAPARIB
     Indication: Prostate cancer
     Dosage: FREQUENCY : DAILY;?
     Route: 048
     Dates: start: 20231018, end: 20231229

REACTIONS (10)
  - Cardiac failure congestive [None]
  - Acute left ventricular failure [None]
  - Troponin increased [None]
  - Atrial fibrillation [None]
  - Confusional state [None]
  - Hallucination [None]
  - Insomnia [None]
  - Respiratory failure [None]
  - Metabolic encephalopathy [None]
  - Parkinson^s disease [None]

NARRATIVE: CASE EVENT DATE: 20241011
